FAERS Safety Report 4748634-9 (Version None)
Quarter: 2005Q3

REPORT INFORMATION
  Report Type: 
  Country: None (occurrence: None)
  Receive Date: 20050817
  Receipt Date: 20050804
  Transmission Date: 20060218
  Serious: Yes (Hospitalization)
  Sender: FDA-Public Use
  Company Number: 2005SP002212

PATIENT
  Age: 56 Year
  Sex: Female

DRUGS (5)
  1. LUNESTA [Suspect]
     Indication: INITIAL INSOMNIA
     Dosage: 40 MG; 1X; ORAL
     Route: 048
     Dates: start: 20050101
  2. ATIVAN [Suspect]
     Dosage: 14 MG; 1X; ORAL
     Route: 048
     Dates: start: 20050101
  3. PROZAC [Concomitant]
  4. ESTRADIOL [Concomitant]
  5. ZYRTEC [Concomitant]

REACTIONS (4)
  - COMA [None]
  - INTENTIONAL MISUSE [None]
  - MULTIPLE DRUG OVERDOSE [None]
  - SUICIDE ATTEMPT [None]
